FAERS Safety Report 19484383 (Version 3)
Quarter: 2021Q3

REPORT INFORMATION
  Report Type: Report from Study
  Country: CA (occurrence: CA)
  Receive Date: 20210701
  Receipt Date: 20210720
  Transmission Date: 20211014
  Serious: Yes (Other)
  Sender: FDA-Public Use
  Company Number: CA-TAKEDA-2021TUS040384

PATIENT
  Age: 66 Year
  Sex: Female

DRUGS (2)
  1. SALOFALK [Concomitant]
     Dosage: 500 MILLIGRAM
     Dates: start: 1990
  2. VEDOLIZUMAB [Suspect]
     Active Substance: VEDOLIZUMAB
     Indication: CROHN^S DISEASE
     Dosage: 300 MILLIGRAM
     Route: 042
     Dates: start: 20210331, end: 20210706

REACTIONS (5)
  - Abdominal pain [Unknown]
  - Rectal tenesmus [Unknown]
  - Haematochezia [Unknown]
  - Crohn^s disease [Unknown]
  - Frequent bowel movements [Unknown]
